FAERS Safety Report 23163674 (Version 1)
Quarter: 2023Q4

REPORT INFORMATION
  Report Type: Spontaneous
  Country: FR (occurrence: FR)
  Receive Date: 20231109
  Receipt Date: 20231109
  Transmission Date: 20240110
  Serious: Yes (Other)
  Sender: FDA-Public Use
  Company Number: None

PATIENT
  Sex: Male

DRUGS (2)
  1. AMOXICILLIN [Suspect]
     Active Substance: AMOXICILLIN
     Indication: Product used for unknown indication
     Dosage: NOT ADMINISTERED
     Route: 065
  2. SYNTOCINON [Suspect]
     Active Substance: OXYTOCIN
     Indication: Product administration error
     Dosage: SOLUTION FOR INJECTION IN AMPOULE, FORM STRENGTH : 5 IU/1 ML, UNIT DOSE : 5 IU, DURATION : 1 DAY
     Dates: start: 20230922, end: 20230922

REACTIONS (3)
  - Bradycardia foetal [Recovered/Resolved]
  - Product administration error [Recovered/Resolved]
  - Wrong drug [Recovered/Resolved]

NARRATIVE: CASE EVENT DATE: 20230922
